FAERS Safety Report 7134247-0 (Version None)
Quarter: 2010Q4

REPORT INFORMATION
  Report Type: 
  Country: None (occurrence: None)
  Receive Date: 20101117
  Receipt Date: 20101109
  Transmission Date: 20110411
  Serious: Yes (Death)
  Sender: FDA-Public Use
  Company Number: AXC-2010-000235

PATIENT
  Age: 49 Year
  Sex: Male

DRUGS (2)
  1. SUCRALFATE [Suspect]
     Indication: PROPHYLAXIS AGAINST GASTROINTESTINAL ULCER
     Dosage: 6 G, QD, INTRAGASTRIC
     Dates: start: 19880122, end: 19880804
  2. ADALAT [Suspect]
     Indication: PRODUCT USED FOR UNKNOWN INDICATION
     Dosage: INTRAGRASTRIC

REACTIONS (3)
  - BEZOAR [None]
  - GASTROINTESTINAL HYPOMOTILITY [None]
  - PNEUMONIA ASPIRATION [None]
